FAERS Safety Report 10668663 (Version 1)
Quarter: 2014Q4

REPORT INFORMATION
  Report Type: Spontaneous
  Country: CA (occurrence: CA)
  Receive Date: 20141222
  Receipt Date: 20141222
  Transmission Date: 20150529
  Serious: Yes (Death)
  Sender: FDA-Public Use
  Company Number: CA-PFIZER INC-2014348878

PATIENT
  Age: 48 Year
  Sex: Male

DRUGS (4)
  1. OXYCONTIN [Suspect]
     Active Substance: OXYCODONE HYDROCHLORIDE
     Dosage: UNK
  2. ALPRAZOLAM. [Suspect]
     Active Substance: ALPRAZOLAM
  3. AMITRIPTYLINE [Suspect]
     Active Substance: AMITRIPTYLINE
  4. CLONAZEPAM. [Suspect]
     Active Substance: CLONAZEPAM

REACTIONS (11)
  - Brain injury [Fatal]
  - Substance abuse [Fatal]
  - Cardiac arrest [Fatal]
  - Overdose [Fatal]
  - Heart rate increased [Fatal]
  - Thinking abnormal [Fatal]
  - Drug dependence [Fatal]
  - Oxygen saturation decreased [Fatal]
  - Miosis [Fatal]
  - Dyskinesia [Fatal]
  - Loss of consciousness [Fatal]
